FAERS Safety Report 7902864 (Version 3)
Quarter: 2013Q4

REPORT INFORMATION
  Report Type: Spontaneous
  Country: US (occurrence: US)
  Receive Date: 20110418
  Receipt Date: 20131114
  Transmission Date: 20140711
  Serious: Yes (Other)
  Sender: FDA-Public Use
  Company Number: US-ROCHE-771549

PATIENT
  Age: 23 Year
  Sex: Female
  Weight: 40.86 kg

DRUGS (2)
  1. ACCUTANE [Suspect]
     Indication: ACNE
     Dosage: FREQUENCY: DAILY.
     Route: 048
  2. ACCUTANE [Suspect]
     Dosage: DOSE: 60 MG, 40 MG DAILY
     Route: 048
     Dates: start: 200007, end: 200101

REACTIONS (8)
  - Irritable bowel syndrome [Unknown]
  - Diverticulitis [Unknown]
  - Gastrointestinal disorder postoperative [Unknown]
  - Intestinal obstruction [Unknown]
  - Chapped lips [Unknown]
  - Lip dry [Unknown]
  - Blood cholesterol increased [Unknown]
  - Acne [Unknown]
